FAERS Safety Report 8035894-4 (Version None)
Quarter: 2012Q1

REPORT INFORMATION
  Report Type: 
  Country: None (occurrence: None)
  Receive Date: 20120111
  Receipt Date: 20120111
  Transmission Date: 20120608
  Serious: Yes (Other)
  Sender: FDA-Public Use
  Company Number: None

PATIENT
  Age: 41 Year
  Sex: Male
  Weight: 75.749 kg

DRUGS (2)
  1. VIIBRYD [Suspect]
     Indication: DEPRESSION
     Dosage: 10MG,20MG,40MG
     Route: 048
     Dates: start: 20111122, end: 20120301
  2. VIIBRYD [Interacting]
     Indication: STRESS
     Route: 048

REACTIONS (5)
  - AGITATION [None]
  - ABNORMAL BEHAVIOUR [None]
  - LEGAL PROBLEM [None]
  - MOOD ALTERED [None]
  - INSOMNIA [None]
